FAERS Safety Report 5060818-1 (Version None)
Quarter: 2006Q3

REPORT INFORMATION
  Report Type: 
  Country: None (occurrence: None)
  Receive Date: 20060725
  Receipt Date: 20060627
  Transmission Date: 20061208
  Serious: Yes (Hospitalization, Other)
  Sender: FDA-Public Use
  Company Number: PHHO2006JP10621

PATIENT
  Age: 30 Year
  Sex: Male
  Weight: 50 kg

DRUGS (7)
  1. GLEEVEC [Suspect]
     Indication: HAEMANGIOPERICYTOMA
     Dosage: 400 MG, QD
     Route: 048
     Dates: start: 20060425, end: 20060627
  2. NAPROXEN [Concomitant]
     Indication: PAIN
  3. OXYCONTIN [Concomitant]
     Indication: PAIN
  4. OPSO DAINIPPON [Concomitant]
     Indication: PAIN
  5. SELBEX [Concomitant]
  6. MAGNESIUM OXIDE [Concomitant]
  7. PANTETHINE [Concomitant]

REACTIONS (10)
  - ANAEMIA [None]
  - BLADDER CATHETERISATION [None]
  - COMA [None]
  - CONDITION AGGRAVATED [None]
  - CONVULSION [None]
  - CYSTITIS HAEMORRHAGIC [None]
  - HAEMATURIA [None]
  - HAEMOGLOBIN DECREASED [None]
  - HYPOGLYCAEMIA [None]
  - SURGERY [None]
